FAERS Safety Report 4850480-2 (Version None)
Quarter: 2005Q4

REPORT INFORMATION
  Report Type: 
  Country: None (occurrence: None)
  Receive Date: 20051123
  Receipt Date: 20051005
  Transmission Date: 20060501
  Serious: Yes (Hospitalization)
  Sender: FDA-Public Use
  Company Number: 218165

PATIENT
  Age: 62 Year
  Sex: Male
  Weight: 104.3 kg

DRUGS (5)
  1. RAPTIVA [Suspect]
     Indication: PSORIASIS
     Dosage: 1 ML, 1/WEEK, SUBCUTANEOUS
     Route: 058
     Dates: start: 20050510, end: 20050928
  2. DOVONEX [Concomitant]
  3. HYDROCHLOROTHIAZIDE [Concomitant]
  4. NADOLOL [Concomitant]
  5. NIFEDIPINE [Concomitant]

REACTIONS (1)
  - CELLULITIS [None]
